FAERS Safety Report 8756468 (Version 2)
Quarter: 2012Q4

REPORT INFORMATION
  Report Type: Spontaneous
  Country: None (occurrence: None)
  Receive Date: 20120814
  Receipt Date: 20120830
  Transmission Date: 20130627
  Serious: Yes (Other)
  Sender: FDA-Public Use
  Company Number: AUR-APL-2012-03412

PATIENT
  Age: 49 Year
  Sex: Male

DRUGS (5)
  1. ZYPREXA [Suspect]
     Indication: MOOD DISORDER NOS
     Route: 048
     Dates: start: 20120515, end: 20120525
  2. AGOMELATINE [Concomitant]
  3. CLONAZEPAM [Concomitant]
  4. OMEPRAZOLE [Concomitant]
  5. SIMVASTATIN [Concomitant]

REACTIONS (3)
  - Epistaxis [None]
  - Gingival bleeding [None]
  - Rectal haemorrhage [None]
